FAERS Safety Report 21603816 (Version 1)
Quarter: 2022Q4

REPORT INFORMATION
  Report Type: Spontaneous
  Country: US (occurrence: US)
  Receive Date: 20221116
  Receipt Date: 20221116
  Transmission Date: 20230113
  Serious: No
  Sender: FDA-Public Use
  Company Number: US-IDORSIA-002028-2022-US

PATIENT
  Age: 67 Year
  Sex: Female

DRUGS (1)
  1. QUVIVIQ [Suspect]
     Active Substance: DARIDOREXANT
     Indication: Insomnia
     Route: 065

REACTIONS (3)
  - Pruritus [Unknown]
  - Tachyphrenia [Unknown]
  - Drug ineffective [Unknown]
